FAERS Safety Report 9472573 (Version 1)
Quarter: 2013Q3

REPORT INFORMATION
  Report Type: Spontaneous
  Country: US (occurrence: None)
  Receive Date: 20130821
  Receipt Date: 20130821
  Transmission Date: 20140515
  Serious: Yes (Other)
  Sender: FDA-Public Use
  Company Number: None

PATIENT
  Age: 32 Year
  Sex: Female
  Weight: 68.95 kg

DRUGS (1)
  1. NUVARING MERCK [Suspect]
     Dosage: 1 RING VAGINAL
     Route: 067

REACTIONS (2)
  - Alopecia [None]
  - Alopecia [None]
